FAERS Safety Report 5467798-5 (Version None)
Quarter: 2007Q3

REPORT INFORMATION
  Report Type: 
  Country: None (occurrence: None)
  Receive Date: 20070814
  Receipt Date: 20070511
  Transmission Date: 20080115
  Serious: No
  Sender: FDA-Public Use
  Company Number: 200711252US

PATIENT
  Age: 68 Year
  Sex: Male

DRUGS (9)
  1. APIDRA [Suspect]
     Indication: TYPE 2 DIABETES MELLITUS
     Dosage: 15-20-20 U INJ
  2. OPTICLIK [Suspect]
     Indication: TYPE 2 DIABETES MELLITUS
  3. LABETALOL [Concomitant]
  4. COUMADIN [Concomitant]
  5. HYDROCHLOROTHIAZIDE [Concomitant]
  6. FOSINOPRIL SODIUM [Concomitant]
  7. ESOMEPRAZOLE [Concomitant]
  8. ACETYLSALICYLIC ACID SRT [Concomitant]
  9. SIMVASTATIN, EZETIMIBE             (VYTORIN) [Concomitant]

REACTIONS (2)
  - BLOOD GLUCOSE DECREASED [None]
  - BLOOD GLUCOSE INCREASED [None]
